FAERS Safety Report 7820233-1 (Version None)
Quarter: 2011Q4

REPORT INFORMATION
  Report Type: 
  Country: None (occurrence: None)
  Receive Date: 20111018
  Receipt Date: 20111007
  Transmission Date: 20120403
  Serious: Yes (Hospitalization, Other)
  Sender: FDA-Public Use
  Company Number: US-CELGENEUS-163-21880-11092182

PATIENT
  Sex: Female
  Weight: 92.616 kg

DRUGS (12)
  1. TRAZODONE HYDROCHLORIDE [Concomitant]
     Route: 065
  2. GEODON [Concomitant]
     Dosage: 60 MILLIGRAM
     Route: 065
  3. LITHIUM [Concomitant]
     Dosage: 600 MILLIGRAM
     Route: 048
  4. PAXIL [Concomitant]
     Indication: DEPRESSION
     Dosage: 20 MILLIGRAM
     Route: 048
  5. REVLIMID [Suspect]
     Dosage: 25 MILLIGRAM
     Route: 048
     Dates: start: 20110506, end: 20110823
  6. ALOXI [Concomitant]
     Indication: NAUSEA
     Route: 048
  7. LITHIUM [Concomitant]
     Dosage: 900 MILLIGRAM
     Route: 065
  8. REVLIMID [Suspect]
     Indication: MULTIPLE MYELOMA
     Dosage: 25 MILLIGRAM
     Route: 048
     Dates: start: 20110422
  9. CLONAZEPAM [Concomitant]
     Dosage: 2 MILLIGRAM
     Route: 048
  10. ALOXI [Concomitant]
     Indication: VOMITING
  11. DEXAMETHASONE [Concomitant]
     Route: 048
  12. VELCADE [Concomitant]
     Indication: MULTIPLE MYELOMA
     Dosage: 2.4 MILLIGRAM
     Route: 041
     Dates: start: 20110502, end: 20110822

REACTIONS (3)
  - SOMNOLENCE [None]
  - DEHYDRATION [None]
  - TOXICITY TO VARIOUS AGENTS [None]
